FAERS Safety Report 13684452 (Version 6)
Quarter: 2018Q4

REPORT INFORMATION
  Report Type: Report from Study
  Country: JP (occurrence: JP)
  Receive Date: 20170623
  Receipt Date: 20181123
  Transmission Date: 20190204
  Serious: Yes (Life-Threatening, Hospitalization, Disabling, Other)
  Sender: FDA-Public Use
  Company Number: JP-BRISTOL-MYERS SQUIBB COMPANY-BMS-2016-031766

PATIENT
  Age: 63 Year
  Sex: Female
  Weight: 48 kg

DRUGS (1)
  1. NIVOLUMAB [Suspect]
     Active Substance: NIVOLUMAB
     Indication: NON-SMALL CELL LUNG CANCER
     Dosage: 3 MG/KG, UNK
     Route: 041
     Dates: start: 20160218, end: 20170105

REACTIONS (7)
  - Intracranial venous sinus thrombosis [Recovered/Resolved with Sequelae]
  - Immune thrombocytopenic purpura [Recovered/Resolved]
  - Nail disorder [Not Recovered/Not Resolved]
  - Sjogren^s syndrome [Recovered/Resolved]
  - Purpura [Recovered/Resolved]
  - Trigger finger [Recovered/Resolved]
  - Lymphadenopathy [Recovered/Resolved]

NARRATIVE: CASE EVENT DATE: 201603
